FAERS Safety Report 20530910 (Version 1)
Quarter: 2022Q1

REPORT INFORMATION
  Report Type: Spontaneous
  Country: US (occurrence: US)
  Receive Date: 20220301
  Receipt Date: 20220301
  Transmission Date: 20220423
  Serious: No
  Sender: FDA-Public Use
  Company Number: US-IGSA-BIG0014169

PATIENT
  Age: 72 Year
  Sex: Female
  Weight: 43.5 kg

DRUGS (8)
  1. PROLASTIN-C LIQUID [Suspect]
     Active Substance: .ALPHA.1-PROTEINASE INHIBITOR HUMAN
     Indication: Alpha-1 antitrypsin deficiency
     Dosage: 2640 MILLIGRAM, Q.WK.
     Route: 042
     Dates: start: 20181120
  2. PROVENTIL [Concomitant]
     Active Substance: ALBUTEROL
  3. PREDNISONE [Concomitant]
     Active Substance: PREDNISONE
  4. ATENOLOL [Concomitant]
     Active Substance: ATENOLOL
  5. PROAIR HFA [Concomitant]
     Active Substance: ALBUTEROL SULFATE
  6. ALPRAZOLAM [Concomitant]
     Active Substance: ALPRAZOLAM
  7. ACETAMINOPHEN\OXYCODONE HYDROCHLORIDE [Concomitant]
     Active Substance: ACETAMINOPHEN\OXYCODONE HYDROCHLORIDE
  8. CEPHALEXIN [Concomitant]
     Active Substance: CEPHALEXIN

REACTIONS (4)
  - Skin discolouration [Recovering/Resolving]
  - Pruritus [Recovering/Resolving]
  - Dilatation intrahepatic duct congenital [Unknown]
  - Condition aggravated [Unknown]

NARRATIVE: CASE EVENT DATE: 20210412
